FAERS Safety Report 24825620 (Version 1)
Quarter: 2025Q1

REPORT INFORMATION
  Report Type: Spontaneous
  Country: IT (occurrence: IT)
  Receive Date: 20250109
  Receipt Date: 20250109
  Transmission Date: 20250409
  Serious: Yes (Hospitalization)
  Sender: PFIZER
  Company Number: IT-MYLANLABS-2024M1115370

PATIENT

DRUGS (4)
  1. LORAZEPAM [Suspect]
     Active Substance: LORAZEPAM
  2. SIMVASTATIN [Suspect]
     Active Substance: SIMVASTATIN
  3. XANAX [Suspect]
     Active Substance: ALPRAZOLAM
  4. TRAZODONE HYDROCHLORIDE [Suspect]
     Active Substance: TRAZODONE HYDROCHLORIDE

REACTIONS (3)
  - Overdose [Unknown]
  - Victim of crime [Unknown]
  - Drug diversion [Unknown]
